FAERS Safety Report 9015164 (Version 1)
Quarter: 2013Q1

REPORT INFORMATION
  Report Type: Spontaneous
  Country: US (occurrence: US)
  Receive Date: 20130116
  Receipt Date: 20130116
  Transmission Date: 20140127
  Serious: No
  Sender: FDA-Public Use
  Company Number: US-B.I. PHARMACEUTICALS,INC./RIDGEFIELD-2013-BI-00674BP

PATIENT
  Age: 71 Year
  Sex: Male
  Weight: 113 kg

DRUGS (14)
  1. PRADAXA [Suspect]
     Indication: ATRIAL FLUTTER
     Dosage: 300 MG
     Route: 048
     Dates: start: 20110131, end: 201204
  2. PRADAXA [Suspect]
     Dosage: 300 MG
     Route: 048
     Dates: start: 201212
  3. TOLTERODINE TARTRATE [Concomitant]
     Indication: PROSTATIC DISORDER
  4. FINESTERIDE [Concomitant]
     Indication: PROSTATIC DISORDER
  5. DILTIAZEM XR [Concomitant]
  6. FLUTICASONE [Concomitant]
     Indication: DYSPNOEA
  7. ADVAIR [Concomitant]
  8. RANITIDINE [Concomitant]
     Indication: DYSPEPSIA
  9. ATORVASTATIN [Concomitant]
     Indication: BLOOD CHOLESTEROL INCREASED
  10. LISINOPRIL [Concomitant]
     Indication: HYPERTENSION
  11. TERAZOSIN [Concomitant]
     Indication: PROSTATIC DISORDER
  12. FUROSEMIDE [Concomitant]
     Indication: FLUID RETENTION
  13. ALBUTEROL [Concomitant]
  14. NITROGLYCERIN [Concomitant]

REACTIONS (1)
  - Dysphonia [Not Recovered/Not Resolved]
